FAERS Safety Report 24382865 (Version 5)
Quarter: 2025Q3

REPORT INFORMATION
  Report Type: Other
  Country: US (occurrence: US)
  Receive Date: 20241001
  Receipt Date: 20250930
  Transmission Date: 20251020
  Serious: No
  Sender: TRAVERE THERAPEUTICS
  Company Number: US-TRAVERE-2024TVT00958

PATIENT
  Age: 64 Year
  Sex: Female

DRUGS (2)
  1. FILSPARI [Suspect]
     Active Substance: SPARSENTAN
     Indication: IgA nephropathy
     Route: 048
  2. FILSPARI [Suspect]
     Active Substance: SPARSENTAN
     Indication: Chronic kidney disease
     Route: 048
     Dates: start: 20240813, end: 20250804

REACTIONS (14)
  - Peripheral swelling [None]
  - Urticaria [Recovering/Resolving]
  - Pruritus [Recovered/Resolved]
  - Swelling [Recovering/Resolving]
  - Limb discomfort [Recovering/Resolving]
  - Somnolence [None]
  - Arthralgia [Unknown]
  - Fall [Unknown]
  - Pain in extremity [Unknown]
  - Fluid retention [None]
  - Musculoskeletal discomfort [Recovering/Resolving]
  - Back disorder [Recovering/Resolving]
  - Oedema peripheral [Unknown]
  - Pollakiuria [Unknown]

NARRATIVE: CASE EVENT DATE: 20241101
